FAERS Safety Report 4866693-X (Version None)
Quarter: 2005Q4

REPORT INFORMATION
  Report Type: 
  Country: None (occurrence: None)
  Receive Date: 20051221
  Receipt Date: 20051214
  Transmission Date: 20060501
  Serious: Yes (Hospitalization)
  Sender: FDA-Public Use
  Company Number: 2005168899

PATIENT
  Age: 30 Year
  Sex: Female

DRUGS (1)
  1. PIROXICAM [Suspect]
     Indication: HEADACHE
     Dosage: 20 MG (20 MG, 1 IN 1 D)
     Dates: start: 20050101

REACTIONS (1)
  - PANCREATITIS [None]
